FAERS Safety Report 8991059 (Version 1)
Quarter: 2012Q4

REPORT INFORMATION
  Report Type: 
  Country: US (occurrence: US)
  Receive Date: 20121231
  Receipt Date: 20121231
  Transmission Date: 20130627
  Serious: Yes (Other)
  Sender: FDA-Public Use
  Company Number: US-BRISTOL-MYERS SQUIBB COMPANY-17231093

PATIENT
  Age: 61 Year
  Sex: Female
  Weight: 97.5 kg

DRUGS (1)
  1. ORENCIA [Suspect]
     Indication: RHEUMATOID ARTHRITIS
     Dosage: Last inf on 5Dec12
No of inf:4
     Route: 042

REACTIONS (1)
  - Intervertebral disc protrusion [Recovering/Resolving]
